FAERS Safety Report 13342031 (Version 1)
Quarter: 2017Q1

REPORT INFORMATION
  Report Type: Spontaneous
  Country: US (occurrence: US)
  Receive Date: 20170315
  Receipt Date: 20170315
  Transmission Date: 20170428
  Serious: No
  Sender: FDA-Public Use
  Company Number: None

PATIENT
  Age: 46 Year
  Sex: Female

DRUGS (1)
  1. IBRANCE [Suspect]
     Active Substance: PALBOCICLIB
     Indication: BREAST CANCER
     Dosage: CAPSULE DAILY ..  ORAL
     Route: 048
     Dates: start: 20160420, end: 20170304

REACTIONS (5)
  - Dry skin [None]
  - Skin irritation [None]
  - Pruritus [None]
  - Stomatitis [None]
  - Rash generalised [None]

NARRATIVE: CASE EVENT DATE: 20170309
